FAERS Safety Report 8790383 (Version 1)
Quarter: 2012Q4

REPORT INFORMATION
  Report Type: 
  Country: CH (occurrence: CH)
  Receive Date: 20120917
  Receipt Date: 20120917
  Transmission Date: 20130627
  Serious: Yes (Hospitalization)
  Sender: FDA-Public Use
  Company Number: CH-JNJFOC-20120906471

PATIENT
  Age: 82 Year
  Sex: Male
  Weight: 68 kg

DRUGS (15)
  1. XARELTO [Suspect]
     Indication: CEREBROVASCULAR ACCIDENT PROPHYLAXIS
     Route: 048
     Dates: start: 201206, end: 201208
  2. XARELTO [Suspect]
     Indication: ATRIAL FIBRILLATION
     Route: 048
     Dates: start: 201206, end: 201208
  3. DRONEDARONE [Suspect]
     Indication: ATRIAL FIBRILLATION
     Route: 048
     Dates: start: 201206
  4. NISULID [Suspect]
     Indication: PRODUCT USED FOR UNKNOWN INDICATION
     Route: 048
  5. ZOLPIDEM TARTRATE [Concomitant]
     Route: 048
  6. ACIDUM FOLICUM STREULI [Concomitant]
     Route: 048
  7. SALMETEROL XINAFOATE [Concomitant]
     Route: 055
     Dates: end: 201208
  8. SERETIDE [Concomitant]
     Route: 055
  9. ECOMUCYL [Concomitant]
     Route: 048
  10. FORADIL [Concomitant]
     Route: 055
  11. FESOTERODINE [Concomitant]
  12. ZANIDIP [Concomitant]
     Route: 048
  13. RAMIPRIL [Concomitant]
     Route: 048
     Dates: end: 201208
  14. ESOMEPRAZOLE [Concomitant]
     Route: 048
  15. HYDROCHLOROTHIAZIDE [Concomitant]
     Route: 048
     Dates: start: 201208

REACTIONS (5)
  - Ataxia [Recovering/Resolving]
  - Muscular weakness [Recovering/Resolving]
  - Renal failure chronic [Recovering/Resolving]
  - Drug ineffective [Recovering/Resolving]
  - Cerebral ischaemia [Unknown]
